FAERS Safety Report 8316773 (Version 4)
Quarter: 2013Q4

REPORT INFORMATION
  Report Type: Spontaneous
  Country: US (occurrence: US)
  Receive Date: 20111230
  Receipt Date: 20131223
  Transmission Date: 20140711
  Serious: Yes (Other)
  Sender: FDA-Public Use
  Company Number: US-BAYER-2011-123169

PATIENT
  Age: 35 Year
  Sex: Female
  Weight: 79.36 kg

DRUGS (6)
  1. YASMIN [Suspect]
     Dosage: UNK
     Dates: start: 20070917, end: 20080922
  2. YASMIN [Suspect]
     Dosage: UNK
     Dates: start: 20070914, end: 20080703
  3. OCELLA [Suspect]
     Dosage: UNK
     Dates: start: 20080922, end: 20090101
  4. LOW-OGESTREL [Concomitant]
  5. PROTONIX [Concomitant]
  6. OMEPRAZOLE [Concomitant]
     Dosage: UNK
     Dates: start: 200908

REACTIONS (5)
  - Cholecystitis chronic [None]
  - Cholelithiasis [None]
  - Abdominal pain [None]
  - Injury [None]
  - Pain [None]
